FAERS Safety Report 5916162-0 (Version None)
Quarter: 2008Q4

REPORT INFORMATION
  Report Type: 
  Country: None (occurrence: None)
  Receive Date: 20081009
  Receipt Date: 20080925
  Transmission Date: 20090506
  Serious: Yes (Hospitalization)
  Sender: FDA-Public Use
  Company Number: 2008BI020690

PATIENT
  Age: 41 Year
  Sex: Male
  Weight: 58.0604 kg

DRUGS (9)
  1. TYSABRI [Suspect]
     Indication: CROHN'S DISEASE
     Dosage: 300 MG;QM;IV
     Route: 042
     Dates: start: 20080710, end: 20080710
  2. SOLU-MEDROL [Concomitant]
  3. OXYCODONE HCL [Concomitant]
  4. MEDICAL MARIJUANA [Concomitant]
  5. COLACE [Concomitant]
  6. PHENERGAN HCL [Concomitant]
  7. KLONOPIN [Concomitant]
  8. TRAZODONE HCL [Concomitant]
  9. . [Concomitant]

REACTIONS (15)
  - BALANCE DISORDER [None]
  - BAND NEUTROPHIL PERCENTAGE DECREASED [None]
  - BLOOD BICARBONATE INCREASED [None]
  - BLOOD CHLORIDE INCREASED [None]
  - BLOOD GLUCOSE INCREASED [None]
  - BLOOD UREA DECREASED [None]
  - CLOSTRIDIAL INFECTION [None]
  - CONDITION AGGRAVATED [None]
  - CROHN'S DISEASE [None]
  - DIZZINESS [None]
  - HAEMATOCRIT DECREASED [None]
  - HAEMOGLOBIN DECREASED [None]
  - HEADACHE [None]
  - LYMPHOCYTE PERCENTAGE DECREASED [None]
  - NEUTROPHIL PERCENTAGE INCREASED [None]
